FAERS Safety Report 20379195 (Version 3)
Quarter: 2022Q3

REPORT INFORMATION
  Report Type: Report from Study
  Country: US (occurrence: US)
  Receive Date: 20220126
  Receipt Date: 20220921
  Transmission Date: 20221027
  Serious: No
  Sender: FDA-Public Use
  Company Number: US-NOVARTISTESTPH-NVSC2022US016662

PATIENT
  Age: 58 Year
  Sex: Female

DRUGS (1)
  1. COSENTYX [Suspect]
     Active Substance: SECUKINUMAB
     Indication: Psoriasis
     Dosage: 300 MG, QW
     Route: 058
     Dates: start: 20211227

REACTIONS (6)
  - Spondylitis [Unknown]
  - Mass [Unknown]
  - Arthritis [Unknown]
  - Pain in extremity [Unknown]
  - Tendon injury [Unknown]
  - Joint injury [Unknown]

NARRATIVE: CASE EVENT DATE: 20220125
